FAERS Safety Report 25525471 (Version 1)
Quarter: 2025Q3

REPORT INFORMATION
  Report Type: Spontaneous
  Country: US (occurrence: None)
  Receive Date: 20250707
  Receipt Date: 20250707
  Transmission Date: 20251020
  Serious: Yes (Other)
  Sender: FDA-CTU
  Company Number: None

PATIENT
  Sex: Female

DRUGS (11)
  1. COSENTYX [Suspect]
     Active Substance: SECUKINUMAB
     Indication: Psoriatic arthropathy
     Dosage: FREQUENCY : MONTHLY;?
  2. ATENOLOL [Concomitant]
     Active Substance: ATENOLOL
  3. ATORVASTATIN [Concomitant]
     Active Substance: ATORVASTATIN
  4. CALCIUM [Concomitant]
     Active Substance: CALCIUM
  5. FOLIC ACID TAB [Concomitant]
  6. MELOXICAM [Concomitant]
     Active Substance: MELOXICAM
  7. METHOTREXATE [Concomitant]
     Active Substance: METHOTREXATE
  8. PREDNISONE [Concomitant]
     Active Substance: PREDNISONE
  9. SHINGRIX [Concomitant]
     Active Substance: RECOMBINANT VARICELLA ZOSTER VIRUS (VZV) GLYCOPROTEIN E
  10. TRANDOLAPRIL TAB [Concomitant]
  11. VASCEPA [Concomitant]
     Active Substance: ICOSAPENT ETHYL

REACTIONS (3)
  - Urticaria [None]
  - Rash [None]
  - Rash [None]
